FAERS Safety Report 20173465 (Version 1)
Quarter: 2021Q4

REPORT INFORMATION
  Report Type: Spontaneous
  Country: US (occurrence: None)
  Receive Date: 20211212
  Receipt Date: 20211212
  Transmission Date: 20220303
  Serious: No
  Sender: FDA-Public Use
  Company Number: 2021A824254

PATIENT
  Age: 21576 Day
  Sex: Female

DRUGS (3)
  1. PULMICORT FLEXHALER [Suspect]
     Active Substance: BUDESONIDE
     Indication: Product prescribing issue
     Route: 055
     Dates: start: 20211122
  2. ALBUTEROL [Concomitant]
     Active Substance: ALBUTEROL
  3. DEXAMETHASONE [Concomitant]
     Active Substance: DEXAMETHASONE
     Dosage: 6 MG, ONE TABLET FOR 9 DAYS

REACTIONS (4)
  - Dyspnoea [Unknown]
  - Lymphadenopathy [Unknown]
  - Cough [Unknown]
  - Product prescribing issue [Unknown]

NARRATIVE: CASE EVENT DATE: 20211122
